FAERS Safety Report 7852005-6 (Version None)
Quarter: 2011Q4

REPORT INFORMATION
  Report Type: 
  Country: None (occurrence: None)
  Receive Date: 20111026
  Receipt Date: 20111018
  Transmission Date: 20120403
  Serious: Yes (Other)
  Sender: FDA-Public Use
  Company Number: JP-SHIRE-ALL1-2011-04053

PATIENT
  Age: 59 Year
  Sex: Male

DRUGS (14)
  1. LASIX [Concomitant]
     Indication: PRODUCT USED FOR UNKNOWN INDICATION
     Dosage: 160 MG, UNKNOWN
     Route: 048
  2. SEVELAMER HYDROCHLORIDE [Concomitant]
     Indication: HYPERPHOSPHATAEMIA
     Dosage: 2500 MG, UNKNOWN
     Route: 048
     Dates: start: 20090529
  3. ALFAROL [Concomitant]
     Dosage: 1.0 IU, UNKNOWN
     Route: 048
     Dates: start: 20091003, end: 20091120
  4. ALFAROL [Concomitant]
     Dosage: 0.5 ?G, UNKNOWN
     Route: 048
     Dates: start: 20091121, end: 20110525
  5. LANTHANUM CARBONATE [Suspect]
     Dosage: 750 MG, UNKNOWN
     Route: 048
     Dates: start: 20090620, end: 20100122
  6. LANTHANUM CARBONATE [Suspect]
     Dosage: 1500 MG, UNKNOWN
     Route: 048
     Dates: start: 20100123, end: 20110525
  7. ALFAROL [Concomitant]
     Indication: PRODUCT USED FOR UNKNOWN INDICATION
     Dosage: 0.5 ?G, UNKNOWN
     Route: 048
     Dates: start: 20090529, end: 20091002
  8. OMEPRAZOLE [Concomitant]
     Indication: PRODUCT USED FOR UNKNOWN INDICATION
     Dosage: 20 MG, UNKNOWN
     Route: 048
  9. CALCIUM CARBONATE [Concomitant]
     Indication: HYPERPHOSPHATAEMIA
     Dosage: 4500 MG, UNKNOWN
     Route: 048
  10. LANTHANUM CARBONATE [Suspect]
     Indication: HYPERPHOSPHATAEMIA
     Dosage: 750 MG, OTHER (IMMEDIATELY AFTER MEALS)
     Route: 048
     Dates: start: 20090529, end: 20090612
  11. LANTHANUM CARBONATE [Suspect]
     Dosage: 1500 MG, UNKNOWN
     Route: 048
     Dates: start: 20090613, end: 20090619
  12. GLUFAST [Concomitant]
     Indication: PRODUCT USED FOR UNKNOWN INDICATION
     Dosage: 15 MG, UNKNOWN
     Route: 048
  13. NESPO [Concomitant]
     Indication: PRODUCT USED FOR UNKNOWN INDICATION
     Dosage: 40 ?G, UNKNOWN
     Route: 041
  14. SEVELAMER HYDROCHLORIDE [Concomitant]
     Dosage: 3000 MG, UNKNOWN
     Route: 048
     Dates: start: 20090619, end: 20110525

REACTIONS (2)
  - OROPHARYNGEAL CANCER STAGE UNSPECIFIED [None]
  - DIARRHOEA [None]
